FAERS Safety Report 24605791 (Version 1)
Quarter: 2024Q4

REPORT INFORMATION
  Report Type: Report from Study
  Country: CN (occurrence: CN)
  Receive Date: 20241111
  Receipt Date: 20241111
  Transmission Date: 20250115
  Serious: Yes (Hospitalization, Other)
  Sender: JOHNSON AND JOHNSON
  Company Number: CN-JNJFOC-20241114639

PATIENT
  Age: 76 Year
  Sex: Male
  Weight: 74.4 kg

DRUGS (6)
  1. ZYTIGA [Suspect]
     Active Substance: ABIRATERONE ACETATE
     Indication: Prostate cancer metastatic
     Dosage: 23-JUL2022/ONGOING
     Route: 048
     Dates: start: 20200805, end: 20220720
  2. PREDNISONE ACETATE [Suspect]
     Active Substance: PREDNISONE ACETATE
     Indication: Hormone-refractory prostate cancer
     Dosage: 23/JUL/2022/ONGOING
     Route: 048
     Dates: start: 20200805, end: 20220720
  3. PRUXELUTAMIDE [Suspect]
     Active Substance: PRUXELUTAMIDE
     Indication: Hormone-refractory prostate cancer
     Dosage: 23/JUL/2022
     Route: 048
     Dates: start: 20200805, end: 20220720
  4. CEFUROXIME AXETIL [Concomitant]
     Active Substance: CEFUROXIME AXETIL
     Indication: Infection
     Route: 065
     Dates: start: 20220727, end: 20220731
  5. TELMISARTAN [Concomitant]
     Active Substance: TELMISARTAN
     Indication: Hypertension
     Route: 065
     Dates: start: 20220727, end: 20220802
  6. RICE BRAN STEROL [Concomitant]
     Dates: start: 20210212

REACTIONS (3)
  - Coronary artery disease [Recovering/Resolving]
  - Myocardial ischaemia [Recovered/Resolved]
  - Chest pain [Recovered/Resolved]

NARRATIVE: CASE EVENT DATE: 20210326
